FAERS Safety Report 4325013-X (Version None)
Quarter: 2004Q1

REPORT INFORMATION
  Report Type: 
  Country: None (occurrence: None)
  Receive Date: 20040326
  Receipt Date: 20040212
  Transmission Date: 20041129
  Serious: Yes (Hospitalization)
  Sender: FDA-Public Use
  Company Number: US-ROCHE-358783

PATIENT
  Age: 58 Year
  Sex: Female
  Weight: 62.6 kg

DRUGS (12)
  1. PEG-INTERFERON ALFA 2A (RO 25-8310) [Suspect]
     Route: 058
     Dates: start: 20030502, end: 20040220
  2. BLINDED THYMOSIN ALFA 1 [Suspect]
     Route: 065
     Dates: start: 20030503, end: 20040221
  3. ADVIL [Concomitant]
     Route: 048
     Dates: start: 20030530
  4. AMBIEN [Concomitant]
     Route: 048
     Dates: start: 20030509
  5. PREMARIN CREAM [Concomitant]
     Route: 061
     Dates: start: 20030510
  6. TOPRICIN [Concomitant]
     Route: 061
     Dates: start: 20030608
  7. MURO #128 SOLUTION [Concomitant]
     Dosage: DRUG REPORTED AS MURO OPTHALMIC OINT.
     Route: 061
     Dates: start: 20031111
  8. UNKNOWN MEDICATION NOS [Concomitant]
     Route: 061
     Dates: start: 20031111
  9. HYDROCHLOROTHIAZIDE [Concomitant]
     Indication: HYPERTENSION
     Dosage: DOSE REPORTED AS 25 MG
     Route: 048
     Dates: start: 20020830
  10. UNKNOWN MEDICATION NOS [Concomitant]
     Indication: HYPERTENSION
     Dosage: DRUG REPORTED AS ALLENOLOL
     Route: 048
     Dates: start: 20020930
  11. LIPITOR [Concomitant]
     Dosage: DOSE REPORTED AS 20 MG
     Route: 048
     Dates: start: 19990415
  12. UNKNOWN MEDICATION NOS [Concomitant]
     Indication: OSTEOPOROSIS
     Dosage: DOSE REPORTED AS 70 MG
     Route: 048
     Dates: start: 20010615

REACTIONS (4)
  - COLITIS [None]
  - HEPATIC NEOPLASM MALIGNANT [None]
  - LYMPHOCYTE COUNT DECREASED [None]
  - PLATELET COUNT DECREASED [None]
